FAERS Safety Report 7710739 (Version 2)
Quarter: 2013Q2

REPORT INFORMATION
  Report Type: Spontaneous
  Country: US (occurrence: US)
  Receive Date: 20101214
  Receipt Date: 20130621
  Transmission Date: 20140414
  Serious: Yes (Other)
  Sender: FDA-Public Use
  Company Number: US-AMGEN-TCS378127

PATIENT
  Age: 52 Year
  Sex: Female

DRUGS (4)
  1. ENBREL [Suspect]
     Indication: RHEUMATOID ARTHRITIS
     Dosage: 50 MG, QWK
     Route: 058
     Dates: start: 20060912
  2. HUMIRA [Suspect]
     Dosage: UNK
  3. ORENCIA [Suspect]
     Dosage: UNK
  4. CIMZIA [Suspect]
     Dosage: UNK

REACTIONS (16)
  - Cholecystectomy [Recovered/Resolved]
  - Large intestine polyp [Recovered/Resolved]
  - Joint swelling [Recovered/Resolved]
  - Rheumatoid arthritis [Not Recovered/Not Resolved]
  - Rheumatoid nodule [Unknown]
  - Bursa disorder [Not Recovered/Not Resolved]
  - Osteopenia [Not Recovered/Not Resolved]
  - Fatigue [Not Recovered/Not Resolved]
  - Hidradenitis [Not Recovered/Not Resolved]
  - Back pain [Not Recovered/Not Resolved]
  - Oedema peripheral [Recovered/Resolved]
  - Influenza like illness [Recovered/Resolved]
  - Hyperhidrosis [Recovered/Resolved]
  - Cellulitis [Recovered/Resolved]
  - Bronchitis [Recovered/Resolved]
  - Injection site haemorrhage [Recovered/Resolved]
